FAERS Safety Report 7067853-2 (Version None)
Quarter: 2010Q4

REPORT INFORMATION
  Report Type: 
  Country: None (occurrence: None)
  Receive Date: 20101028
  Receipt Date: 20101021
  Transmission Date: 20110411
  Serious: Yes (Other)
  Sender: FDA-Public Use
  Company Number: SE-PFIZER INC-2010133811

PATIENT
  Age: 52 Year
  Sex: Female

DRUGS (5)
  1. MEDROL [Suspect]
     Indication: MULTIPLE SCLEROSIS
     Dosage: 1000 MG, 1X/DAY
     Dates: start: 20100601, end: 20100601
  2. SPIRONOLACTONE [Concomitant]
     Dosage: UNK
  3. BACLOFEN [Concomitant]
     Dosage: UNK
  4. WARAN [Concomitant]
     Dosage: UNK
  5. FURIX [Concomitant]
     Dosage: UNK

REACTIONS (2)
  - ANAPHYLACTIC SHOCK [None]
  - TONGUE DISCOLOURATION [None]
